FAERS Safety Report 24943240 (Version 1)
Quarter: 2025Q1

REPORT INFORMATION
  Report Type: Report from Study
  Country: CA (occurrence: CA)
  Receive Date: 20250207
  Receipt Date: 20250207
  Transmission Date: 20250408
  Serious: Yes (Life-Threatening, Hospitalization)
  Sender: JOHNSON AND JOHNSON
  Company Number: CA-JNJFOC-20250206393

PATIENT
  Age: 44 Year
  Sex: Male
  Weight: 91 kg

DRUGS (1)
  1. STELARA [Suspect]
     Active Substance: USTEKINUMAB
     Indication: Colitis ulcerative
     Route: 040
     Dates: start: 20250110, end: 20250110

REACTIONS (2)
  - Seizure [Unknown]
  - Spinal fracture [Unknown]

NARRATIVE: CASE EVENT DATE: 20250203
